FAERS Safety Report 5022506-7 (Version None)
Quarter: 2006Q2

REPORT INFORMATION
  Report Type: 
  Country: None (occurrence: None)
  Receive Date: 20060605
  Receipt Date: 20060519
  Transmission Date: 20061013
  Serious: Yes (Death, Other)
  Sender: FDA-Public Use
  Company Number: HK-2006-012235

PATIENT
  Age: 65 Year
  Sex: Male

DRUGS (3)
  1. FLUDARA [Suspect]
     Indication: B-CELL LYMPHOMA RECURRENT
     Dosage: 6 CYCLE,
     Dates: start: 20000501
  2. MITOXANTRONE [Suspect]
     Indication: B-CELL LYMPHOMA RECURRENT
     Dosage: 6 CYCLE,
     Dates: start: 20000501
  3. DEXAMETHASONE TAB [Concomitant]

REACTIONS (1)
  - ACUTE PROMYELOCYTIC LEUKAEMIA [None]
